FAERS Safety Report 12175616 (Version 1)
Quarter: 2016Q1

REPORT INFORMATION
  Report Type: Spontaneous
  Country: BR (occurrence: BR)
  Receive Date: 20160314
  Receipt Date: 20160314
  Transmission Date: 20160526
  Serious: Yes (Other)
  Sender: FDA-Public Use
  Company Number: BR-PFIZER INC-2016147894

PATIENT
  Age: 53 Year
  Sex: Female
  Weight: 85 kg

DRUGS (13)
  1. HYLO-GEL [Concomitant]
     Indication: EYE LUBRICATION THERAPY
     Dosage: 2X/DAY
  2. SYSTANE (HYPROMELLOSE 2910 (4000 MPA.S)) [Concomitant]
     Active Substance: HYPROMELLOSE 2910 (4000 MPA.S)
     Indication: EYE LUBRICATION THERAPY
     Dosage: 6X/DAY
  3. AMITRIPTYLINE [Concomitant]
     Active Substance: AMITRIPTYLINE
     Indication: DEPRESSION
     Dosage: 1 TABLET
     Dates: start: 2004
  4. SERTRALINE [Concomitant]
     Active Substance: SERTRALINE HYDROCHLORIDE
     Indication: DEPRESSION
     Dosage: 1 TABLET PER DAY
  5. CYMBALTA [Concomitant]
     Active Substance: DULOXETINE HYDROCHLORIDE
     Indication: PAIN
  6. ALPRAZOLAM. [Concomitant]
     Active Substance: ALPRAZOLAM
     Indication: SLEEP DISORDER
     Dosage: 1 TABLET
     Dates: start: 2014
  7. LYRICA [Suspect]
     Active Substance: PREGABALIN
     Indication: PAIN
     Dosage: 300 MG (4 TABLETS) PER DAY
     Dates: start: 201506
  8. ATENOLOL. [Concomitant]
     Active Substance: ATENOLOL
     Indication: BLOOD PRESSURE MEASUREMENT
     Dosage: 2 TABLETS PER DAY
     Dates: start: 2008
  9. CYMBALTA [Concomitant]
     Active Substance: DULOXETINE HYDROCHLORIDE
     Indication: ANTIDEPRESSANT THERAPY
     Dosage: 2 TABLETS PER DAY
  10. TRAMAL [Concomitant]
     Active Substance: TRAMADOL
     Indication: PAIN
     Dosage: 2 TABLETS PER DAY
  11. AMYTRIL [Concomitant]
     Active Substance: AMITRIPTYLINE HYDROCHLORIDE
     Indication: SLEEP DISORDER
     Dosage: ^1^ PER DAY
  12. ENALAPRIL [Concomitant]
     Active Substance: ENALAPRIL
     Indication: BLOOD PRESSURE MEASUREMENT
     Dosage: 1 TABLET AT NIGHT
     Dates: start: 2014
  13. XALATAN [Suspect]
     Active Substance: LATANOPROST
     Indication: INTRAOCULAR PRESSURE INCREASED
     Dosage: 1 DROP PER DAY
     Dates: start: 2015

REACTIONS (4)
  - Photopsia [Unknown]
  - Condition aggravated [Unknown]
  - Intracranial aneurysm [Unknown]
  - Glaucoma [Unknown]
